FAERS Safety Report 10483602 (Version 1)
Quarter: 2014Q3

REPORT INFORMATION
  Report Type: Spontaneous
  Country: NG (occurrence: None)
  Receive Date: 20140926
  Receipt Date: 20140926
  Transmission Date: 20150326
  Serious: Yes (Other)
  Sender: FDA-Public Use
  Company Number: IMP_07938_2014

PATIENT
  Sex: Female

DRUGS (1)
  1. CHLOROQUINE [Suspect]
     Active Substance: CHLOROQUINE\CHLOROQUINE PHOSPHATE
     Indication: PRODUCT USED FOR UNKNOWN INDICATION
     Dosage: DF INTRAMUSCULAR
     Route: 030

REACTIONS (3)
  - Ototoxicity [None]
  - Abortion spontaneous [None]
  - Maternal exposure during pregnancy [None]
